FAERS Safety Report 5116512-1 (Version None)
Quarter: 2006Q3

REPORT INFORMATION
  Report Type: 
  Country: None (occurrence: None)
  Receive Date: 20060928
  Receipt Date: 20060919
  Transmission Date: 20061208
  Serious: Yes (Other)
  Sender: FDA-Public Use
  Company Number: PHBS2006JP14438

PATIENT
  Age: 2 Year
  Sex: Female

DRUGS (1)
  1. TEGRETOL [Suspect]
     Indication: EPILEPSY
     Dosage: UNK, UNK
     Route: 048

REACTIONS (5)
  - BLOOD ALKALINE PHOSPHATASE INCREASED [None]
  - DIARRHOEA [None]
  - HYPERPHOSPHATASAEMIA [None]
  - RASH [None]
  - URTICARIA [None]
